FAERS Safety Report 21235712 (Version 1)
Quarter: 2022Q3

REPORT INFORMATION
  Report Type: Spontaneous
  Country: US (occurrence: US)
  Receive Date: 20220821
  Receipt Date: 20220821
  Transmission Date: 20221027
  Serious: No
  Sender: FDA-Public Use
  Company Number: US-SA-SAC20220819000099

PATIENT
  Sex: Female
  Weight: 117.02 kg

DRUGS (19)
  1. DUPIXENT [Suspect]
     Active Substance: DUPILUMAB
     Indication: Nasal polyps
     Dosage: 300 MG, QOW
     Route: 058
  2. DUPIXENT [Suspect]
     Active Substance: DUPILUMAB
     Indication: Ill-defined disorder
  3. ASPIRIN [Concomitant]
     Active Substance: ASPIRIN
  4. SIMVASTATIN [Concomitant]
     Active Substance: SIMVASTATIN
  5. MONTELUKAST SODIUM [Concomitant]
     Active Substance: MONTELUKAST SODIUM
  6. PLAQUENIL [Concomitant]
     Active Substance: HYDROXYCHLOROQUINE SULFATE
  7. SULFASALAZINE [Concomitant]
     Active Substance: SULFASALAZINE
  8. HYDROXYZINE HYDROCHLORIDE [Concomitant]
     Active Substance: HYDROXYZINE HYDROCHLORIDE
  9. MELOXICAM [Concomitant]
     Active Substance: MELOXICAM
  10. PANTOPRAZOLE SODIUM [Concomitant]
     Active Substance: PANTOPRAZOLE SODIUM
  11. AVALIDE [Concomitant]
     Active Substance: HYDROCHLOROTHIAZIDE\IRBESARTAN
  12. DULERA [Concomitant]
     Active Substance: FORMOTEROL FUMARATE DIHYDRATE\MOMETASONE FUROATE
  13. AZELASTINE HYDROCHLORIDE [Concomitant]
     Active Substance: AZELASTINE HYDROCHLORIDE
  14. PROAIR HFA [Concomitant]
     Active Substance: ALBUTEROL SULFATE
  15. TYLENOL [Concomitant]
     Active Substance: ACETAMINOPHEN
  16. VITAMINS [Concomitant]
     Active Substance: VITAMINS
  17. MODERNA COVID-19 VACCINE [Concomitant]
     Active Substance: ELASOMERAN
  18. MELOXICAM [Concomitant]
     Active Substance: MELOXICAM
  19. VITAMINS NOS [Concomitant]
     Active Substance: VITAMINS

REACTIONS (4)
  - Anaemia [Unknown]
  - Fall [Unknown]
  - Upper limb fracture [Unknown]
  - COVID-19 [Unknown]

NARRATIVE: CASE EVENT DATE: 20210701
